FAERS Safety Report 11513722 (Version 1)
Quarter: 2015Q3

REPORT INFORMATION
  Report Type: Spontaneous
  Country: US (occurrence: US)
  Receive Date: 20150903
  Receipt Date: 20150903
  Transmission Date: 20151125
  Serious: Yes (Hospitalization)
  Sender: FDA-Public Use
  Company Number: US-ELI_LILLY_AND_COMPANY-US201211002528

PATIENT
  Sex: Female

DRUGS (2)
  1. CYMBALTA [Suspect]
     Active Substance: DULOXETINE HYDROCHLORIDE
     Indication: PAIN
     Dosage: 60 MG, QD
  2. HALDOL [Concomitant]
     Active Substance: HALOPERIDOL

REACTIONS (5)
  - Hyperhidrosis [Unknown]
  - Drug interaction [Unknown]
  - Mydriasis [Unknown]
  - Tremor [Unknown]
  - Hallucination [Unknown]
